FAERS Safety Report 4906099-8 (Version None)
Quarter: 2006Q1

REPORT INFORMATION
  Report Type: 
  Country: None (occurrence: None)
  Receive Date: 20060207
  Receipt Date: 20060207
  Transmission Date: 20060701
  Serious: Yes (Other)
  Sender: FDA-Public Use
  Company Number: None

PATIENT
  Sex: Female

DRUGS (2)
  1. TRAVATAN [Suspect]
     Indication: GLAUCOMA
     Dosage: 1 GTT QHS  OU   (DURATION: LIFETIME)
  2. PRED FORTE  1.0%  5ML [Suspect]
     Indication: CATARACT
     Dosage: 1 GTT BID  OU

REACTIONS (2)
  - IRITIS [None]
  - POST PROCEDURAL COMPLICATION [None]
